FAERS Safety Report 20763675 (Version 2)
Quarter: 2022Q2

REPORT INFORMATION
  Report Type: Spontaneous
  Country: US (occurrence: US)
  Receive Date: 20220428
  Receipt Date: 20220614
  Transmission Date: 20220720
  Serious: Yes (Hospitalization)
  Sender: FDA-Public Use
  Company Number: US-PFIZER INC-202200360037

PATIENT
  Age: 76 Year
  Sex: Female
  Weight: 76.644 kg

DRUGS (3)
  1. IBRANCE [Suspect]
     Active Substance: PALBOCICLIB
     Indication: Bone cancer
     Dosage: 125 MG, CYCLIC (21 DAYS)
     Dates: start: 20220211, end: 2022
  2. IBRANCE [Suspect]
     Active Substance: PALBOCICLIB
     Dosage: 125 MG, CYCLIC (21 DAYS)
     Dates: start: 2022
  3. FEMARA [Concomitant]
     Active Substance: LETROZOLE
     Indication: Bone cancer
     Dosage: 2.5 MG, DAILY
     Dates: start: 20220211

REACTIONS (13)
  - Musculoskeletal chest pain [Not Recovered/Not Resolved]
  - Pain in extremity [Not Recovered/Not Resolved]
  - Fatigue [Not Recovered/Not Resolved]
  - Taste disorder [Unknown]
  - Off label use [Unknown]
  - Rash [Not Recovered/Not Resolved]
  - Hypoaesthesia [Not Recovered/Not Resolved]
  - Tremor [Unknown]
  - Mouth ulceration [Unknown]
  - Weight decreased [Unknown]
  - Decreased appetite [Unknown]
  - Pyrexia [Unknown]
  - Stress [Unknown]

NARRATIVE: CASE EVENT DATE: 20220101
